FAERS Safety Report 4979078-2 (Version None)
Quarter: 2006Q2

REPORT INFORMATION
  Report Type: 
  Country: None (occurrence: None)
  Receive Date: 20060414
  Receipt Date: 20060405
  Transmission Date: 20061013
  Serious: Yes (Life-Threatening)
  Sender: FDA-Public Use
  Company Number: ZONI002305

PATIENT
  Age: 79 Year
  Sex: Female

DRUGS (3)
  1. ZONISAMIDE [Suspect]
     Indication: EPILEPSY
     Dosage: 200 MG, ORAL
     Route: 048
     Dates: start: 20060210, end: 20060331
  2. FAMOTIDINE [Concomitant]
  3. DECADRON [Concomitant]

REACTIONS (1)
  - INTERSTITIAL LUNG DISEASE [None]
